FAERS Safety Report 6526391-3 (Version None)
Quarter: 2009Q4

REPORT INFORMATION
  Report Type: 
  Country: None (occurrence: None)
  Receive Date: 20091229
  Receipt Date: 20091221
  Transmission Date: 20100525
  Serious: Yes (Hospitalization)
  Sender: FDA-Public Use
  Company Number: 2009SP032634

PATIENT
  Age: 38 Year
  Sex: Female
  Weight: 52.1637 kg

DRUGS (3)
  1. NUVARING [Suspect]
     Indication: CONTRACEPTION
     Dosage: 1 DF; QM; VAG
     Route: 067
     Dates: start: 20040101, end: 20050101
  2. NUVARING [Suspect]
     Indication: MENSTRUAL CYCLE MANAGEMENT
     Dosage: 1 DF; QM; VAG
     Route: 067
     Dates: start: 20040101, end: 20050101
  3. TYLENOL (CAPLET) [Concomitant]

REACTIONS (5)
  - ATRIAL FIBRILLATION [None]
  - BODY TEMPERATURE INCREASED [None]
  - CEREBROVASCULAR ACCIDENT [None]
  - JAUNDICE [None]
  - TRANSIENT ISCHAEMIC ATTACK [None]
